FAERS Safety Report 5910514-0 (Version None)
Quarter: 2008Q4

REPORT INFORMATION
  Report Type: 
  Country: None (occurrence: None)
  Receive Date: 20081007
  Receipt Date: 20080213
  Transmission Date: 20090506
  Serious: Yes (Other)
  Sender: FDA-Public Use
  Company Number: US-ASTRAZENECA-2008UW03069

PATIENT
  Age: 63 Year
  Sex: Female

DRUGS (6)
  1. ARIMIDEX [Suspect]
     Indication: BREAST CANCER
     Route: 048
  2. METFORMIN HCL [Concomitant]
  3. AVANDIA [Concomitant]
  4. ZOCOR [Concomitant]
  5. BENICAR [Concomitant]
  6. LEXAPRO [Concomitant]

REACTIONS (2)
  - BACK PAIN [None]
  - OEDEMA PERIPHERAL [None]
